FAERS Safety Report 5693640-3 (Version None)
Quarter: 2008Q2

REPORT INFORMATION
  Report Type: 
  Country: None (occurrence: None)
  Receive Date: 20080403
  Receipt Date: 20080327
  Transmission Date: 20081010
  Serious: Yes (Hospitalization)
  Sender: FDA-Public Use
  Company Number: ZA-ROCHE-555814

PATIENT

DRUGS (4)
  1. SAQUINAVIR [Suspect]
     Indication: HIV INFECTION
     Route: 065
  2. RITONAVIR [Interacting]
     Indication: HIV INFECTION
     Route: 065
  3. ITRACONAZOLE [Interacting]
     Indication: FUNGAL INFECTION
     Route: 065
  4. ITRACONAZOLE [Interacting]
     Route: 065

REACTIONS (2)
  - DRUG INTERACTION [None]
  - DRUG TOXICITY [None]
